FAERS Safety Report 7249577-1 (Version None)
Quarter: 2011Q1

REPORT INFORMATION
  Report Type: 
  Country: None (occurrence: None)
  Receive Date: 20110128
  Receipt Date: 20110121
  Transmission Date: 20110831
  Serious: Yes (Hospitalization, Disabling)
  Sender: FDA-Public Use
  Company Number: DE-SANOFI-AVENTIS-2011SA001684

PATIENT
  Age: 66 Year
  Sex: Male
  Weight: 75 kg

DRUGS (6)
  1. MARCUMAR [Concomitant]
     Route: 048
  2. LISINOPRIL [Concomitant]
     Route: 048
  3. ZOCOR [Concomitant]
     Route: 048
  4. MULTAQ [Suspect]
     Indication: ATRIAL FIBRILLATION
     Route: 048
     Dates: start: 20100323, end: 20100923
  5. CORDAREX [Suspect]
     Route: 065
  6. CONCOR [Concomitant]
     Route: 048

REACTIONS (3)
  - LICHENOID KERATOSIS [None]
  - PRURITUS GENERALISED [None]
  - LUNG DISORDER [None]
